FAERS Safety Report 11625410 (Version 3)
Quarter: 2015Q4

REPORT INFORMATION
  Report Type: Report from Study
  Country: NP (occurrence: NP)
  Receive Date: 20151013
  Receipt Date: 20151201
  Transmission Date: 20160304
  Serious: Yes (Death, Disabling)
  Sender: FDA-Public Use
  Company Number: PHHY2015NP123634

PATIENT
  Sex: Male
  Weight: 45 kg

DRUGS (1)
  1. GLIVEC [Suspect]
     Active Substance: IMATINIB MESYLATE
     Indication: BLAST CRISIS IN MYELOGENOUS LEUKAEMIA
     Dosage: 600 MG, QD
     Route: 048
     Dates: start: 20150818

REACTIONS (9)
  - Polyarthritis [Unknown]
  - Nausea [Not Recovered/Not Resolved]
  - Pancytopenia [Unknown]
  - Blast crisis in myelogenous leukaemia [Not Recovered/Not Resolved]
  - Vomiting [Not Recovered/Not Resolved]
  - Death [Fatal]
  - Marrow hyperplasia [Unknown]
  - Sepsis [Unknown]
  - C-reactive protein increased [Unknown]
